FAERS Safety Report 5237773-4 (Version None)
Quarter: 2007Q1

REPORT INFORMATION
  Report Type: 
  Country: None (occurrence: None)
  Receive Date: 20070214
  Receipt Date: 20070209
  Transmission Date: 20070707
  Serious: Yes (Death)
  Sender: FDA-Public Use
  Company Number: JP-JPN-A200700461

PATIENT
  Sex: Male

DRUGS (2)
  1. PAXIL [Suspect]
     Indication: BIPOLAR DISORDER
     Route: 048
  2. LITHIUM CARBONATE [Concomitant]
     Route: 048

REACTIONS (1)
  - COMPLETED SUICIDE [None]
